FAERS Safety Report 22089848 (Version 1)
Quarter: 2023Q1

REPORT INFORMATION
  Report Type: Report from Study
  Country: US (occurrence: US)
  Receive Date: 20230313
  Receipt Date: 20230313
  Transmission Date: 20230418
  Serious: Yes (Hospitalization)
  Sender: FDA-Public Use
  Company Number: US-MYLANLABS-202101603431

PATIENT
  Sex: Female

DRUGS (2)
  1. LYRICA [Suspect]
     Active Substance: PREGABALIN
     Indication: Product used for unknown indication
     Dosage: UNK
     Route: 065
  2. LYRICA [Suspect]
     Active Substance: PREGABALIN
     Dosage: 100 MILLIGRAM, BID, 100 MG, 2X/DAY
     Route: 065

REACTIONS (5)
  - Hospitalisation [Unknown]
  - Limb discomfort [Unknown]
  - Pain [Unknown]
  - Memory impairment [Unknown]
  - Intentional product misuse [Unknown]
